FAERS Safety Report 13967367 (Version 1)
Quarter: 2017Q3

REPORT INFORMATION
  Report Type: Spontaneous
  Country: US (occurrence: US)
  Receive Date: 20170914
  Receipt Date: 20170914
  Transmission Date: 20171128
  Serious: No
  Sender: FDA-Public Use
  Company Number: US-PFIZER INC-2017394970

PATIENT
  Age: 54 Year
  Sex: Female

DRUGS (1)
  1. XELJANZ XR [Suspect]
     Active Substance: TOFACITINIB CITRATE
     Indication: ARTHRALGIA
     Dosage: 11 MG, DAILY

REACTIONS (14)
  - Pain in extremity [Unknown]
  - Joint range of motion decreased [Unknown]
  - Muscle tightness [Unknown]
  - Kyphosis [Unknown]
  - Dry mouth [Unknown]
  - Synovitis [Unknown]
  - Contusion [Unknown]
  - Musculoskeletal stiffness [Unknown]
  - Musculoskeletal pain [Unknown]
  - Grip strength decreased [Unknown]
  - Back pain [Unknown]
  - Arthralgia [Unknown]
  - Joint swelling [Unknown]
  - Joint stiffness [Unknown]
